FAERS Safety Report 15452985 (Version 1)
Quarter: 2018Q4

REPORT INFORMATION
  Report Type: Spontaneous
  Country: US (occurrence: US)
  Receive Date: 20181001
  Receipt Date: 20181001
  Transmission Date: 20190204
  Serious: Yes (Hospitalization)
  Sender: FDA-Public Use
  Company Number: US-ELI_LILLY_AND_COMPANY-US201809008322

PATIENT
  Age: 78 Year
  Sex: Male

DRUGS (1)
  1. FORTEO [Suspect]
     Active Substance: TERIPARATIDE
     Indication: OSTEOPOROSIS
     Dosage: UNK, UNKNOWN
     Route: 065
     Dates: start: 20170104

REACTIONS (6)
  - Mass [Unknown]
  - Rash pruritic [Unknown]
  - Muscle spasms [Unknown]
  - Basal cell carcinoma [Unknown]
  - Rash macular [Unknown]
  - Dehydration [Unknown]

NARRATIVE: CASE EVENT DATE: 20180916
